FAERS Safety Report 20826965 (Version 2)
Quarter: 2022Q2

REPORT INFORMATION
  Report Type: Spontaneous
  Country: DE (occurrence: DE)
  Receive Date: 20220513
  Receipt Date: 20220617
  Transmission Date: 20220721
  Serious: Yes (Hospitalization)
  Sender: FDA-Public Use
  Company Number: DE-BRISTOL-MYERS SQUIBB COMPANY-2022-021027

PATIENT
  Age: 63 Year
  Sex: Male
  Weight: 97.5 kg

DRUGS (4)
  1. GABAPENTIN [Suspect]
     Active Substance: GABAPENTIN
     Indication: Neuropathy peripheral
     Dosage: 900 MILLIGRAM, QD (3X300 MG)
     Route: 048
     Dates: start: 20220318
  2. CARBAMAZEPINE [Suspect]
     Active Substance: CARBAMAZEPINE
     Indication: Neuropathy peripheral
     Dosage: 300 MILLIGRAM, QD (1X300 MG, 1X450 MG)
     Route: 048
     Dates: start: 20220318
  3. CARBAMAZEPINE [Suspect]
     Active Substance: CARBAMAZEPINE
     Dosage: 450 MILLIGRAM, QD (450 MG, 1X/DAY)
     Route: 048
     Dates: start: 20220318
  4. APIXABAN [Concomitant]
     Active Substance: APIXABAN
     Indication: Cerebrovascular accident prophylaxis
     Dosage: 5 MILLIGRAM, QD (2.5 MG, 2X/DAY)
     Route: 048

REACTIONS (1)
  - Muscular weakness [Recovered/Resolved]

NARRATIVE: CASE EVENT DATE: 20220323
